FAERS Safety Report 10159213 (Version 1)
Quarter: 2014Q2

REPORT INFORMATION
  Report Type: Spontaneous
  Country: US (occurrence: None)
  Receive Date: 20140507
  Receipt Date: 20140507
  Transmission Date: 20141212
  Serious: Yes (Hospitalization)
  Sender: FDA-Public Use
  Company Number: None

PATIENT
  Age: 69 Year
  Sex: Female
  Weight: 87 kg

DRUGS (2)
  1. CARBOPLATIN [Suspect]
  2. TAXOL [Suspect]

REACTIONS (8)
  - Musculoskeletal pain [None]
  - Confusional state [None]
  - Asthenia [None]
  - Dehydration [None]
  - Atrial fibrillation [None]
  - Metastases to neck [None]
  - Pyrexia [None]
  - Respiratory distress [None]
